FAERS Safety Report 8773134 (Version 1)
Quarter: 2012Q4

REPORT INFORMATION
  Report Type: 
  Country: RU (occurrence: RU)
  Receive Date: 20120908
  Receipt Date: 20120908
  Transmission Date: 20130627
  Serious: Yes (Death, Hospitalization, Other)
  Sender: FDA-Public Use
  Company Number: RU-B.I. PHARMACEUTICALS,INC./RIDGEFIELD-2012-AP-00724AP

PATIENT
  Age: 75 Year
  Sex: Female

DRUGS (1)
  1. PRADAXA [Suspect]
     Indication: THROMBOSIS PROPHYLAXIS
     Dosage: 220 mg
     Route: 048
     Dates: start: 20120819, end: 20120824

REACTIONS (7)
  - Shock haemorrhagic [Fatal]
  - Retroperitoneal haematoma [Fatal]
  - Intestinal haemorrhage [Fatal]
  - Disseminated intravascular coagulation [Fatal]
  - Abdominal injury [Fatal]
  - Activated partial thromboplastin time prolonged [Unknown]
  - International normalised ratio increased [Unknown]
